FAERS Safety Report 13365715 (Version 1)
Quarter: 2017Q1

REPORT INFORMATION
  Report Type: Spontaneous
  Country: US (occurrence: US)
  Receive Date: 20170323
  Receipt Date: 20170323
  Transmission Date: 20170429
  Serious: No
  Sender: FDA-Public Use
  Company Number: US-WARNER CHILCOTT-2016-001949

PATIENT
  Age: 64 Year
  Sex: Female
  Weight: 72.56 kg

DRUGS (3)
  1. WELLBUTRIN [Concomitant]
     Active Substance: BUPROPION HYDROCHLORIDE
     Indication: DEPRESSION
     Dosage: UNK
     Route: 048
  2. ESTRACE [Suspect]
     Active Substance: ESTRADIOL
     Indication: LIBIDO DECREASED
     Dosage: 1 APPLICATOR-FULL ONCE ONLY
     Route: 067
     Dates: start: 20160823, end: 20160823
  3. ALLERGY MEDICATION [Concomitant]
     Active Substance: DIPHENHYDRAMINE HYDROCHLORIDE
     Indication: HYPERSENSITIVITY
     Dosage: UNK UNK, PRN
     Route: 048

REACTIONS (7)
  - Burning sensation [Unknown]
  - Erythema [Unknown]
  - Skin warm [Unknown]
  - Hypersensitivity [Unknown]
  - Flushing [Unknown]
  - Product use issue [Unknown]
  - Swelling face [Unknown]

NARRATIVE: CASE EVENT DATE: 20160823
